FAERS Safety Report 22968723 (Version 3)
Quarter: 2023Q4

REPORT INFORMATION
  Report Type: Spontaneous
  Country: JP (occurrence: JP)
  Receive Date: 20230921
  Receipt Date: 20231011
  Transmission Date: 20240110
  Serious: Yes (Death, Hospitalization, Other)
  Sender: FDA-Public Use
  Company Number: JP-SA-2023SA285214

PATIENT
  Age: 50 Year
  Sex: Female

DRUGS (3)
  1. THYMOGLOBULINE [Suspect]
     Active Substance: LAPINE T-LYMPHOCYTE IMMUNE GLOBULIN
     Indication: Graft versus host disease in gastrointestinal tract
     Route: 041
  2. TACROLIMUS [Concomitant]
     Active Substance: TACROLIMUS
     Indication: Graft versus host disease in gastrointestinal tract
     Route: 065
  3. ACYCLOVIR [Concomitant]
     Active Substance: ACYCLOVIR
     Indication: Meningoencephalitis herpetic
     Route: 041

REACTIONS (8)
  - Progressive multifocal leukoencephalopathy [Fatal]
  - Quadriparesis [Fatal]
  - Aphasia [Fatal]
  - Abnormal behaviour [Fatal]
  - Altered state of consciousness [Fatal]
  - Paralysis [Fatal]
  - JC virus infection [Unknown]
  - Sepsis [Unknown]
